FAERS Safety Report 13051382 (Version 1)
Quarter: 2016Q4

REPORT INFORMATION
  Report Type: Spontaneous
  Country: US (occurrence: US)
  Receive Date: 20161221
  Receipt Date: 20161221
  Transmission Date: 20170207
  Serious: Yes (Death)
  Sender: FDA-Public Use
  Company Number: None

PATIENT
  Sex: Male
  Weight: 78.7 kg

DRUGS (3)
  1. ASPIRIN. [Concomitant]
     Active Substance: ASPIRIN
  2. DARZALEX [Suspect]
     Active Substance: DARATUMUMAB
     Indication: PLASMA CELL MYELOMA
     Dosage: INTRAVENOUS (NOT OTHERWISE SPECIIFED)
     Route: 042
  3. CALCIUM [Concomitant]
     Active Substance: CALCIUM

REACTIONS (3)
  - Fatigue [None]
  - Asthenia [None]
  - Loss of consciousness [None]
